FAERS Safety Report 7257956-1 (Version None)
Quarter: 2011Q1

REPORT INFORMATION
  Report Type: 
  Country: None (occurrence: None)
  Receive Date: 20110129
  Receipt Date: 20100706
  Transmission Date: 20110831
  Serious: No
  Sender: FDA-Public Use
  Company Number: US-ABBOTT-10P-163-0650717-00

PATIENT
  Sex: Female

DRUGS (5)
  1. VITAMINS AND THAT KIND OF STUFF [Concomitant]
     Indication: PRODUCT USED FOR UNKNOWN INDICATION
  2. HUMIRA [Suspect]
     Indication: CROHN'S DISEASE
     Dates: start: 20100401
  3. KLONOPIN [Concomitant]
     Indication: PRODUCT USED FOR UNKNOWN INDICATION
     Dosage: AT NIGHT
  4. WELLBUTRIN [Concomitant]
     Indication: PRODUCT USED FOR UNKNOWN INDICATION
  5. PHOSPHIAKIM [Concomitant]
     Indication: BONE DENSITY DECREASED

REACTIONS (2)
  - INJECTION SITE EROSION [None]
  - DEVICE MALFUNCTION [None]
